FAERS Safety Report 4691048-0 (Version None)
Quarter: 2005Q2

REPORT INFORMATION
  Report Type: 
  Country: None (occurrence: None)
  Receive Date: 20050615
  Receipt Date: 20050311
  Transmission Date: 20051028
  Serious: Yes (Disabling, Other)
  Sender: FDA-Public Use
  Company Number: 2005UW03898

PATIENT
  Age: 77 Year
  Sex: Female
  Weight: 81.4 kg

DRUGS (6)
  1. CRESTOR [Suspect]
     Indication: BLOOD CHOLESTEROL INCREASED
     Route: 048
     Dates: start: 20040225, end: 20041108
  2. CRESTOR [Suspect]
     Indication: LIPIDS INCREASED
     Route: 048
     Dates: start: 20040225, end: 20041108
  3. NORVASC [Concomitant]
     Indication: HYPERTENSION
     Route: 048
  4. DIAZIDE [Concomitant]
     Indication: HYPERTENSION
     Dosage: 37.5/25 MG
     Route: 048
  5. COREG [Concomitant]
  6. ASPIRIN [Concomitant]

REACTIONS (2)
  - BLINDNESS UNILATERAL [None]
  - RETINAL ARTERY OCCLUSION [None]
